FAERS Safety Report 13986476 (Version 2)
Quarter: 2017Q4

REPORT INFORMATION
  Report Type: Spontaneous
  Country: US (occurrence: NL)
  Receive Date: 20170919
  Receipt Date: 20171003
  Transmission Date: 20180321
  Serious: Yes (Other)
  Sender: FDA-Public Use
  Company Number: US-SUNOVION-2017SUN004084

PATIENT

DRUGS (4)
  1. XOTERNA BREEZHALER [Suspect]
     Active Substance: GLYCOPYRRONIUM\INDACATEROL
     Indication: PRODUCT USED FOR UNKNOWN INDICATION
     Dosage: 1 DF, QD (1 X 1 PER DAY)
     Route: 055
  2. INDACATEROL AND GLYCOPYRROLATE [Suspect]
     Active Substance: GLYCOPYRROLATE\INDACATEROL MALEATE
     Dosage: UNK
     Route: 055
  3. INDACATEROL AND GLYCOPYRROLATE [Suspect]
     Active Substance: GLYCOPYRROLATE\INDACATEROL MALEATE
     Indication: PRODUCT USED FOR UNKNOWN INDICATION
     Dosage: 1 DF, QD (1 X 1 PER DAY)
     Route: 055
     Dates: start: 201611
  4. ALVESCO [Concomitant]
     Active Substance: CICLESONIDE
     Dosage: UNK

REACTIONS (8)
  - Vision blurred [Unknown]
  - Dry mouth [Unknown]
  - Abdominal pain [Unknown]
  - Incorrect route of drug administration [Unknown]
  - Haematochezia [Unknown]
  - Flatulence [Unknown]
  - Gastrointestinal sounds abnormal [Unknown]
  - Drug intolerance [Unknown]
